FAERS Safety Report 5246404-9 (Version None)
Quarter: 2007Q1

REPORT INFORMATION
  Report Type: 
  Country: None (occurrence: None)
  Receive Date: 20070226
  Receipt Date: 20070220
  Transmission Date: 20070707
  Serious: Yes (Other)
  Sender: FDA-Public Use
  Company Number: US-JNJFOC-20070205108

PATIENT
  Sex: Female
  Weight: 58.97 kg

DRUGS (11)
  1. DURAGESIC [Suspect]
     Indication: PAIN
     Route: 062
  2. NORCO [Concomitant]
     Indication: PAIN
     Route: 048
  3. FIORINAL [Concomitant]
     Indication: HEADACHE
     Route: 048
  4. IMITREX [Concomitant]
     Indication: MIGRAINE
     Route: 048
  5. ATIVAN [Concomitant]
     Route: 048
  6. XANAX [Concomitant]
     Route: 048
  7. EFFEXOR [Concomitant]
     Route: 048
  8. NEURONTIN [Concomitant]
     Route: 048
  9. ZANAFLEX [Concomitant]
     Route: 048
  10. TYLENOL [Concomitant]
     Indication: PAIN
     Route: 048
  11. TEMAZEPAM [Concomitant]
     Indication: SLEEP DISORDER
     Route: 048

REACTIONS (3)
  - INFECTION [None]
  - PAIN [None]
  - SOMNOLENCE [None]
